FAERS Safety Report 6784854-X (Version None)
Quarter: 2010Q2

REPORT INFORMATION
  Report Type: 
  Country: None (occurrence: None)
  Receive Date: 20100622
  Receipt Date: 20100614
  Transmission Date: 20101027
  Serious: Yes (Other)
  Sender: FDA-Public Use
  Company Number: US-PERRIGO-10US010496

PATIENT
  Sex: Male
  Weight: 29.025 kg

DRUGS (1)
  1. IBUPROFEN 100MG JR GRAPE CHEWABLE 521 [Suspect]
     Indication: TOOTHACHE
     Dosage: 300 MG, SINGLE
     Route: 048
     Dates: start: 20100610, end: 20100610

REACTIONS (5)
  - APHASIA [None]
  - CONVULSION [None]
  - DROOLING [None]
  - DYSKINESIA [None]
  - INCORRECT DOSE ADMINISTERED [None]
